FAERS Safety Report 8888212 (Version 2)
Quarter: 2019Q1

REPORT INFORMATION
  Report Type: Spontaneous
  Country: US (occurrence: US)
  Receive Date: 20121106
  Receipt Date: 20190128
  Transmission Date: 20190418
  Serious: Yes (Other)
  Sender: FDA-Public Use
  Company Number: US-SANOFI-AVENTIS-2012SA080601

PATIENT
  Age: 76 Year
  Sex: Male

DRUGS (2)
  1. LANTUS [Suspect]
     Active Substance: INSULIN GLARGINE
     Indication: TYPE 2 DIABETES MELLITUS
     Dosage: 85 DF,QD
     Route: 058
     Dates: start: 2005, end: 20121024
  2. LANTUS [Suspect]
     Active Substance: INSULIN GLARGINE
     Dosage: 20 BKF / 27BEDTIME

REACTIONS (2)
  - Rectal cancer [Unknown]
  - Off label use [Unknown]
